FAERS Safety Report 15011123 (Version 4)
Quarter: 2018Q3

REPORT INFORMATION
  Report Type: Report from Study
  Country: ES (occurrence: ES)
  Receive Date: 20180614
  Receipt Date: 20180817
  Transmission Date: 20181010
  Serious: Yes (Hospitalization)
  Sender: FDA-Public Use
  Company Number: ES-PFIZER INC-2018238270

PATIENT
  Age: 57 Year
  Sex: Female

DRUGS (12)
  1. LOPERAMIDE [Concomitant]
     Active Substance: LOPERAMIDE
     Dosage: UNK
     Route: 065
     Dates: start: 20150816, end: 20150818
  2. ZALTRAP [Suspect]
     Active Substance: ZIV-AFLIBERCEPT
     Indication: COLORECTAL CANCER METASTATIC
     Dosage: 340 MG, CYCLIC
     Route: 041
     Dates: start: 20150707, end: 20150707
  3. BETAHISTINE DIHYDROCHLORIDE [Concomitant]
     Active Substance: BETAHISTINE
     Dosage: UNK
     Route: 065
     Dates: start: 2000
  4. 5?FU /00098801/ [Suspect]
     Active Substance: FLUOROURACIL
     Dosage: 1504 MG, CYCLIC
     Route: 040
     Dates: start: 20150811, end: 20150811
  5. ZALTRAP [Suspect]
     Active Substance: ZIV-AFLIBERCEPT
     Dosage: 340 MG, CYCLIC
     Route: 041
     Dates: start: 20150811, end: 20150811
  6. LEUCOVORIN. [Suspect]
     Active Substance: LEUCOVORIN
     Dosage: 752 MG, CYCLIC
     Route: 041
     Dates: start: 20150811, end: 20150811
  7. 5?FU /00098801/ [Suspect]
     Active Substance: FLUOROURACIL
     Dosage: 2256 MG, CYCLIC
     Route: 041
     Dates: start: 20150811, end: 20150811
  8. IRINOTECAN HCL [Suspect]
     Active Substance: IRINOTECAN HYDROCHLORIDE
     Dosage: 338.4 MG, CYCLIC
     Route: 041
     Dates: start: 20150811, end: 20150811
  9. LEUCOVORIN. [Suspect]
     Active Substance: LEUCOVORIN
     Indication: COLORECTAL CANCER METASTATIC
     Dosage: 752 MG, CYCLIC
     Route: 041
     Dates: start: 20150707, end: 20150707
  10. 5?FU /00098801/ [Suspect]
     Active Substance: FLUOROURACIL
     Dosage: 2256 MG, CYCLIC
     Route: 041
     Dates: start: 20150707
  11. IRINOTECAN HCL [Suspect]
     Active Substance: IRINOTECAN HYDROCHLORIDE
     Indication: COLORECTAL CANCER METASTATIC
     Dosage: 338.4 MG, CYCLIC
     Route: 041
     Dates: start: 20150707, end: 20150707
  12. 5?FU /00098801/ [Suspect]
     Active Substance: FLUOROURACIL
     Indication: COLORECTAL CANCER METASTATIC
     Dosage: 1504 MG, CYCLIC
     Route: 040
     Dates: start: 20150707, end: 20150707

REACTIONS (6)
  - Asthenia [Not Recovered/Not Resolved]
  - Diarrhoea [Recovered/Resolved]
  - Vomiting [Recovered/Resolved]
  - Stomatitis [Recovered/Resolved]
  - Respiratory tract infection [Recovered/Resolved]
  - Neutropenia [Recovered/Resolved]

NARRATIVE: CASE EVENT DATE: 20150825
